FAERS Safety Report 9219362 (Version 1)
Quarter: 2013Q2

REPORT INFORMATION
  Report Type: Spontaneous
  Country: FR (occurrence: FR)
  Receive Date: 20130409
  Receipt Date: 20130409
  Transmission Date: 20140414
  Serious: Yes (Hospitalization)
  Sender: FDA-Public Use
  Company Number: FR-ELI_LILLY_AND_COMPANY-FR201304000849

PATIENT
  Sex: Female
  Weight: 75 kg

DRUGS (10)
  1. GEMZAR [Suspect]
     Indication: HEPATIC CANCER METASTATIC
     Dosage: 100 MG/M2, UNK
     Route: 042
     Dates: start: 201301, end: 20130124
  2. OXALIPLATIN [Concomitant]
     Indication: HEPATIC CANCER METASTATIC
     Route: 042
  3. PRIMPERAN [Concomitant]
     Dosage: 10 MG, TID
  4. ZOPHREN [Concomitant]
     Dosage: 8 MG, BID
  5. LOVENOX [Concomitant]
     Dosage: 4000 IU, QD
  6. INEXIUM [Concomitant]
     Dosage: 40 MG, QD
  7. AMLOR [Concomitant]
     Dosage: 10 MG, QD
  8. COAPROVEL [Concomitant]
     Dosage: 12.5 MG, QD
  9. LEVOTHYROX [Concomitant]
     Dosage: 125 MG, QD
  10. GAVISCON                           /00237601/ [Concomitant]
     Dosage: 10 ML, QD

REACTIONS (4)
  - Mixed liver injury [Recovering/Resolving]
  - Chest pain [Recovered/Resolved]
  - Pyrexia [Recovered/Resolved]
  - Off label use [Unknown]
